FAERS Safety Report 5146016-1 (Version None)
Quarter: 2006Q4

REPORT INFORMATION
  Report Type: 
  Country: None (occurrence: None)
  Receive Date: 20061102
  Receipt Date: 20061019
  Transmission Date: 20070319
  Serious: Yes (Other)
  Sender: FDA-Public Use
  Company Number: 2006129688

PATIENT
  Sex: Female

DRUGS (1)
  1. CELEBREX [Suspect]
     Indication: FALL

REACTIONS (4)
  - ALLERGY TO CHEMICALS [None]
  - EYE ALLERGY [None]
  - MEMORY IMPAIRMENT [None]
  - OSTEOPOROSIS [None]
